FAERS Safety Report 8011152-9 (Version None)
Quarter: 2011Q4

REPORT INFORMATION
  Report Type: 
  Country: None (occurrence: None)
  Receive Date: 20111228
  Receipt Date: 20111215
  Transmission Date: 20120403
  Serious: Yes (Other)
  Sender: FDA-Public Use
  Company Number: PHHY2011GR111090

PATIENT
  Age: 68 Year
  Sex: Female

DRUGS (2)
  1. CORTICOSTEROIDS [Concomitant]
     Indication: PSORIATIC ARTHROPATHY
     Dosage: UNK UKN, UNK
  2. CYCLOSPORINE [Suspect]
     Indication: PSORIATIC ARTHROPATHY
     Dosage: UNK UKN, UNK

REACTIONS (17)
  - ALOPECIA [None]
  - NERVE INJURY [None]
  - PERONEAL NERVE PALSY [None]
  - SKIN EXFOLIATION [None]
  - SENSORY DISTURBANCE [None]
  - LEPROMATOUS LEPROSY [None]
  - NOSE DEFORMITY [None]
  - ARTHROPATHY [None]
  - ERYTHEMA [None]
  - OEDEMA PERIPHERAL [None]
  - PSORIATIC ARTHROPATHY [None]
  - RASH GENERALISED [None]
  - MYCOBACTERIUM TEST POSITIVE [None]
  - PYREXIA [None]
  - EAR DEFORMITY ACQUIRED [None]
  - SKIN MASS [None]
  - SKIN PLAQUE [None]
